FAERS Safety Report 5885222-5 (Version None)
Quarter: 2008Q3

REPORT INFORMATION
  Report Type: 
  Country: None (occurrence: None)
  Receive Date: 20080916
  Receipt Date: 20080902
  Transmission Date: 20090109
  Serious: Yes (Hospitalization)
  Sender: FDA-Public Use
  Company Number: PHEH1996US10628

PATIENT
  Sex: Male
  Weight: 113 kg

DRUGS (10)
  1. NEORAL [Suspect]
     Route: 048
     Dates: start: 19950328
  2. ATENOLOL [Concomitant]
     Dosage: UNSPECIFIED
     Route: 065
  3. PREDNISONE TAB [Concomitant]
     Dosage: UNSPECIFIED
     Route: 065
  4. BACTRIM [Concomitant]
     Dosage: UNSPECIFIED
     Route: 065
  5. MYCELEX [Concomitant]
     Dosage: UNSPECIFIED
     Route: 065
  6. ACYCLOVIR [Concomitant]
     Dosage: UNSPECIFIED
     Route: 065
  7. PEPCID [Concomitant]
     Dosage: UNSPECIFIED
     Route: 065
  8. LASIX [Concomitant]
     Dosage: UNSPECIFIED
     Route: 065
  9. PROCARDIA [Concomitant]
     Dosage: UNSPECIFIED
     Route: 065
  10. IMURAN [Suspect]
     Dosage: UNSPECIFIED
     Route: 065

REACTIONS (3)
  - BODY TEMPERATURE INCREASED [None]
  - CHILLS [None]
  - CYTOMEGALOVIRUS INFECTION [None]
